FAERS Safety Report 4282221-4 (Version None)
Quarter: 2004Q1

REPORT INFORMATION
  Report Type: 
  Country: None (occurrence: None)
  Receive Date: 20040130
  Receipt Date: 20040123
  Transmission Date: 20041129
  Serious: Yes (Hospitalization, Disabling)
  Sender: FDA-Public Use
  Company Number: JP-GLAXOSMITHKLINE-B0320870A

PATIENT
  Age: 30 Year
  Sex: Male

DRUGS (10)
  1. LAMIVUDINE [Suspect]
     Indication: HIV INFECTION
     Route: 048
     Dates: start: 19991020
  2. NELFINAVIR MESILATE [Suspect]
     Indication: HIV INFECTION
     Dates: start: 19991020
  3. STAVUDINE [Suspect]
     Indication: HIV INFECTION
     Dates: start: 19991020, end: 20001010
  4. ZIDOVUDINE [Suspect]
     Indication: HIV INFECTION
     Dates: start: 20001010
  5. BACTRIM [Concomitant]
     Route: 048
  6. FLUCONAZOLE [Concomitant]
     Route: 048
     Dates: start: 20011109, end: 20011211
  7. FAMOTIDINE [Concomitant]
     Route: 048
     Dates: start: 19990908, end: 20030608
  8. TEPRENONE [Concomitant]
     Route: 048
     Dates: start: 20000608, end: 20030108
  9. SPARFLOXACIN [Concomitant]
     Route: 048
     Dates: start: 19990722, end: 20020621
  10. ETHAMBUTOL HCL [Concomitant]
     Route: 048
     Dates: start: 19990701, end: 20020719

REACTIONS (12)
  - ACTIVITIES OF DAILY LIVING IMPAIRED [None]
  - CATARACT [None]
  - CEREBELLAR ATROPHY [None]
  - CEREBRAL DISORDER [None]
  - GAIT DISTURBANCE [None]
  - NEUROPATHY PERIPHERAL [None]
  - NUCLEAR MAGNETIC RESONANCE IMAGING ABDOMINAL [None]
  - PROGRESSIVE MULTIFOCAL LEUKOENCEPHALOPATHY [None]
  - SPEECH DISORDER [None]
  - VISION BLURRED [None]
  - VISUAL ACUITY REDUCED [None]
  - VISUAL DISTURBANCE [None]
